FAERS Safety Report 17505828 (Version 6)
Quarter: 2022Q3

REPORT INFORMATION
  Report Type: Report from Study
  Country: US (occurrence: US)
  Receive Date: 20200306
  Receipt Date: 20220913
  Transmission Date: 20221026
  Serious: Yes (Other)
  Sender: FDA-Public Use
  Company Number: NVSC2020US059122

PATIENT
  Sex: Female

DRUGS (1)
  1. OMNITROPE [Suspect]
     Active Substance: SOMATROPIN
     Indication: Product used for unknown indication
     Dosage: 5 MG
     Route: 065

REACTIONS (4)
  - Brain neoplasm [Unknown]
  - Thyroid disorder [Unknown]
  - Device leakage [Unknown]
  - Accidental exposure to product [Unknown]
